FAERS Safety Report 20079108 (Version 1)
Quarter: 2021Q4

REPORT INFORMATION
  Report Type: Spontaneous
  Country: US (occurrence: US)
  Receive Date: 20211117
  Receipt Date: 20211117
  Transmission Date: 20220303
  Serious: No
  Sender: FDA-Public Use
  Company Number: US-ALLERGAN-2106823US

PATIENT
  Sex: Male

DRUGS (6)
  1. RAPAFLO [Suspect]
     Active Substance: SILODOSIN
     Indication: Neurogenic bladder
     Dosage: 8 MG, QD
     Route: 048
  2. BOTOX [Concomitant]
     Active Substance: ONABOTULINUMTOXINA
     Indication: Neurogenic bladder
     Dosage: UNK, SINGLE
  3. URECHOLINE [Concomitant]
     Active Substance: BETHANECHOL CHLORIDE
     Dosage: UNK
  4. DIOVAN [Concomitant]
     Active Substance: VALSARTAN
     Dosage: UNK
  5. VALSARTAN [Concomitant]
     Active Substance: VALSARTAN
     Dosage: UNK
  6. CARVEDILOL [Concomitant]
     Active Substance: CARVEDILOL
     Dosage: UNK

REACTIONS (1)
  - Off label use [Unknown]
